FAERS Safety Report 6397202-4 (Version None)
Quarter: 2009Q3

REPORT INFORMATION
  Report Type: 
  Country: None (occurrence: None)
  Receive Date: 20090929
  Receipt Date: 20090924
  Transmission Date: 20100115
  Serious: Yes (Life-Threatening, Hospitalization)
  Sender: FDA-Public Use
  Company Number: 2009020741

PATIENT
  Sex: Female
  Weight: 58.9676 kg

DRUGS (11)
  1. VIVAGLOBIN [Suspect]
     Indication: HYPOGAMMAGLOBULINAEMIA
     Dosage: 5.28 GRAMS (33) WEEKLY SUBCUTANEOUS)
     Route: 058
     Dates: start: 20071001
  2. ORAL CONTRACEPTIVE (ORAL CONTRACEPTIVE NOS) [Suspect]
     Dosage: ORAL
     Route: 048
  3. SINGULAIR [Concomitant]
  4. TOPAMAX [Concomitant]
  5. VITAMIN B12 [Concomitant]
  6. ZYRTEC [Concomitant]
  7. ALEVE [Concomitant]
  8. IMITREX [Concomitant]
  9. ALBUTEROL [Concomitant]
  10. IBUPROFEN (OTC) (IBUPROFEN) [Concomitant]
  11. AUGMENTIN '125' [Concomitant]

REACTIONS (3)
  - CEREBROVASCULAR ACCIDENT [None]
  - INTRACRANIAL VENOUS SINUS THROMBOSIS [None]
  - URTICARIA [None]
